FAERS Safety Report 20423475 (Version 1)
Quarter: 2022Q1

REPORT INFORMATION
  Report Type: Spontaneous
  Country: US (occurrence: US)
  Receive Date: 20220203
  Receipt Date: 20220203
  Transmission Date: 20220423
  Serious: No
  Sender: FDA-Public Use
  Company Number: US-PERRIGO-21US011409

PATIENT
  Age: 0 Year
  Sex: Male
  Weight: 8.39 kg

DRUGS (2)
  1. IBUPROFEN [Suspect]
     Active Substance: IBUPROFEN
     Indication: Pyrexia
     Dosage: 80 MG, BID
     Route: 048
     Dates: start: 20210812, end: 20210813
  2. APAP [Concomitant]
     Active Substance: ACETAMINOPHEN
     Indication: Pyrexia
     Dosage: 120 MG, QD
     Route: 048
     Dates: start: 20210812, end: 20210813

REACTIONS (3)
  - Infantile vomiting [Recovered/Resolved]
  - Infant irritability [Recovered/Resolved]
  - Product administered to patient of inappropriate age [Recovered/Resolved]

NARRATIVE: CASE EVENT DATE: 20210812
